FAERS Safety Report 10253271 (Version 1)
Quarter: 2014Q2

REPORT INFORMATION
  Report Type: Spontaneous
  Country: BR (occurrence: BR)
  Receive Date: 20140623
  Receipt Date: 20140623
  Transmission Date: 20141212
  Serious: No
  Sender: FDA-Public Use
  Company Number: BR-ELI_LILLY_AND_COMPANY-BR201406004667

PATIENT
  Age: 72 Year
  Sex: Male
  Weight: 83 kg

DRUGS (5)
  1. CIALIS [Suspect]
     Indication: ERECTILE DYSFUNCTION
     Dosage: 20 MG, OTHER
     Route: 048
     Dates: start: 201405
  2. SECOTEX [Concomitant]
     Dosage: 0.4 MG, EACH EVENING
     Route: 065
  3. CRESTOR [Concomitant]
     Dosage: 10 MG, EACH EVENING
     Route: 065
  4. DIOVAN AMLO [Concomitant]
     Dosage: 1 DF, OTHER
     Route: 065
  5. ASPIRINA [Concomitant]
     Dosage: 100 MG, QD
     Route: 065

REACTIONS (2)
  - Vision blurred [Recovered/Resolved]
  - Feeling hot [Recovered/Resolved]
